FAERS Safety Report 6172183-7 (Version None)
Quarter: 2009Q2

REPORT INFORMATION
  Report Type: 
  Country: None (occurrence: None)
  Receive Date: 20090424
  Receipt Date: 20090113
  Transmission Date: 20091009
  Serious: No
  Sender: FDA-Public Use
  Company Number: ALL1-2009-00085

PATIENT
  Age: 39 Year
  Sex: Female
  Weight: 72.6 kg

DRUGS (3)
  1. VYVANSE [Suspect]
     Indication: ATTENTION DEFICIT/HYPERACTIVITY DISORDER
     Dosage: 20 MG, ONE DOSE, ORAL
     Route: 048
     Dates: start: 20090113, end: 20090113
  2. VITAMINS (VITAMINS NOS) [Concomitant]
  3. LEVOXYL [Concomitant]

REACTIONS (1)
  - DRUG DIVERSION [None]
